FAERS Safety Report 5701739-8 (Version None)
Quarter: 2008Q2

REPORT INFORMATION
  Report Type: 
  Country: None (occurrence: None)
  Receive Date: 20080411
  Receipt Date: 20080331
  Transmission Date: 20081010
  Serious: Yes (Other)
  Sender: FDA-Public Use
  Company Number: FR-JNJFOC-20080303956

PATIENT
  Sex: Male
  Weight: 3.64 kg

DRUGS (5)
  1. REMICADE [Suspect]
  2. REMICADE [Suspect]
     Indication: DRUG EXPOSURE DURING PREGNANCY
  3. IMUREL [Concomitant]
  4. XANAX [Concomitant]
  5. DEROXAT [Concomitant]

REACTIONS (1)
  - PREMATURE BABY [None]
